FAERS Safety Report 25639048 (Version 1)
Quarter: 2025Q3

REPORT INFORMATION
  Report Type: Spontaneous
  Country: EU (occurrence: EU)
  Receive Date: 20250804
  Receipt Date: 20250804
  Transmission Date: 20251021
  Serious: Yes (Other)
  Sender: EPIC PHARM
  Company Number: EU-EPICPHARMA-FR-2025EPCLIT00869

PATIENT
  Age: 6 Decade
  Sex: Male

DRUGS (7)
  1. HALOPERIDOL LACTATE [Suspect]
     Active Substance: HALOPERIDOL LACTATE
     Indication: Hallucination, visual
     Route: 065
  2. HALOPERIDOL LACTATE [Suspect]
     Active Substance: HALOPERIDOL LACTATE
     Indication: Insomnia
     Route: 065
  3. HALOPERIDOL LACTATE [Suspect]
     Active Substance: HALOPERIDOL LACTATE
     Indication: Delirium
  4. POSACONAZOLE [Suspect]
     Active Substance: POSACONAZOLE
     Indication: Mucormycosis
     Route: 048
  5. ISAVUCONAZOLE [Concomitant]
     Active Substance: ISAVUCONAZOLE
     Indication: Mucormycosis
     Route: 042
  6. ISAVUCONAZOLE [Concomitant]
     Active Substance: ISAVUCONAZOLE
     Route: 042
  7. TIAPRIDE [Concomitant]
     Active Substance: TIAPRIDE
     Indication: Hallucination, visual
     Route: 065

REACTIONS (4)
  - Hypoventilation [Unknown]
  - Hypercapnia [Unknown]
  - Drug interaction [Unknown]
  - Product use in unapproved indication [Unknown]
